FAERS Safety Report 10178538 (Version 2)
Quarter: 2014Q3

REPORT INFORMATION
  Report Type: Spontaneous
  Country: JP (occurrence: JP)
  Receive Date: 20140519
  Receipt Date: 20140707
  Transmission Date: 20150326
  Serious: Yes (Life-Threatening)
  Sender: FDA-Public Use
  Company Number: JP-EISAI INC-E2090-03267-SPO-JP

PATIENT
  Age: 43 Year
  Sex: Female

DRUGS (13)
  1. BROTIZOLAM OD [Concomitant]
     Indication: INSOMNIA
     Dosage: 0.25 MG DAILY
     Route: 048
     Dates: start: 20131015
  2. PAXIL CR [Interacting]
     Active Substance: PAROXETINE HYDROCHLORIDE
     Indication: DEPRESSION
     Route: 048
     Dates: start: 20130920, end: 20131014
  3. PAXIL CR [Interacting]
     Active Substance: PAROXETINE HYDROCHLORIDE
     Dosage: 25 MG DAILY
     Route: 048
     Dates: start: 20131015, end: 20140526
  4. MADOPAR [Suspect]
     Active Substance: BENSERAZIDE HYDROCHLORIDE\LEVODOPA
     Dosage: 1 TABLET ADDED (TOTAL DOSE 5.5 TABLETS DAILY)
     Route: 048
     Dates: start: 20140510
  5. MAGMITT [Concomitant]
     Active Substance: MAGNESIUM OXIDE
     Indication: CONSTIPATION
     Dosage: 1980 MG DAILY
     Route: 048
     Dates: start: 20140507
  6. TRERIEF [Suspect]
     Active Substance: ZONISAMIDE
     Indication: PARKINSON^S DISEASE
     Route: 048
     Dates: start: 20140502
  7. PERMAX [Suspect]
     Active Substance: PERGOLIDE
     Indication: PARKINSON^S DISEASE
     Dosage: 1000 MCG
     Route: 048
     Dates: start: 20110712
  8. VESICARE OD [Concomitant]
     Indication: NEUROGENIC BLADDER
     Dosage: 2.5 MG DAILY
     Route: 048
     Dates: start: 20111018
  9. MADOPAR [Suspect]
     Active Substance: BENSERAZIDE HYDROCHLORIDE\LEVODOPA
     Dosage: 1 TABLET ADDED (TOTAL DOSE: 4.5 TABLETS DAILY)
     Route: 048
     Dates: start: 20140507, end: 20140509
  10. APOKYN [Concomitant]
     Active Substance: APOMORPHINE HYDROCHLORIDE
     Indication: PARKINSON^S DISEASE
     Dosage: 1 MG
     Route: 058
     Dates: end: 20140510
  11. COMTAN [Suspect]
     Active Substance: ENTACAPONE
     Indication: PARKINSON^S DISEASE
     Dosage: 300 MG DAILY
     Route: 048
     Dates: start: 20120803
  12. NAUZELIN [Concomitant]
     Active Substance: DOMPERIDONE
     Indication: NAUSEA
     Dosage: 20 MG DAILY
     Route: 048
     Dates: start: 20110712
  13. MADOPAR [Suspect]
     Active Substance: BENSERAZIDE HYDROCHLORIDE\LEVODOPA
     Indication: PARKINSON^S DISEASE
     Dosage: 3.5 TABLETS DAILY
     Route: 048
     Dates: start: 20110920, end: 20140506

REACTIONS (2)
  - Serotonin syndrome [Recovering/Resolving]
  - Drug interaction [Recovering/Resolving]

NARRATIVE: CASE EVENT DATE: 20140511
